FAERS Safety Report 9006107 (Version 2)
Quarter: 2013Q1

REPORT INFORMATION
  Report Type: Spontaneous
  Country: DE (occurrence: DE)
  Receive Date: 20130109
  Receipt Date: 20130208
  Transmission Date: 20140127
  Serious: Yes (Hospitalization)
  Sender: FDA-Public Use
  Company Number: PHHY2013DE001913

PATIENT
  Age: 65 Year
  Sex: Male

DRUGS (3)
  1. 5-FLUOROURACIL [Suspect]
     Indication: NASOPHARYNGEAL CANCER
  2. MITOMYCIN [Suspect]
     Indication: NASOPHARYNGEAL CANCER
  3. RADIATION [Suspect]
     Indication: NASOPHARYNGEAL CANCER

REACTIONS (5)
  - Dysphagia [Recovered/Resolved]
  - Pneumonia aspiration [Recovered/Resolved]
  - Aspiration [Recovered/Resolved]
  - Dry mouth [Unknown]
  - Trismus [Unknown]
